FAERS Safety Report 20603335 (Version 2)
Quarter: 2022Q2

REPORT INFORMATION
  Report Type: Spontaneous
  Country: US (occurrence: None)
  Receive Date: 20220316
  Receipt Date: 20220520
  Transmission Date: 20220721
  Serious: No
  Sender: FDA-Public Use
  Company Number: 2022A082000

PATIENT
  Age: 27611 Day
  Sex: Female

DRUGS (1)
  1. PULMICORT FLEXHALER [Suspect]
     Active Substance: BUDESONIDE
     Dosage: 180MCG PULMICORT FLEXHALER FOR APPROXIMATELY 8 TO 10 YEARS
     Route: 055

REACTIONS (3)
  - Oral discomfort [Unknown]
  - Device malfunction [Unknown]
  - Device chemical property issue [Unknown]

NARRATIVE: CASE EVENT DATE: 20220219
